FAERS Safety Report 6428925-6 (Version None)
Quarter: 2009Q4

REPORT INFORMATION
  Report Type: 
  Country: None (occurrence: None)
  Receive Date: 20091104
  Receipt Date: 20091104
  Transmission Date: 20100525
  Serious: Yes (Hospitalization)
  Sender: FDA-Public Use
  Company Number: None

PATIENT
  Sex: Male
  Weight: 84.09 kg

DRUGS (7)
  1. MEMANTINE HCL [Suspect]
     Dosage: 490 MG
  2. ACIPHEX [Concomitant]
  3. ASPIRIN [Concomitant]
  4. BACID [Concomitant]
  5. LEVAQUIN [Concomitant]
  6. LIPITOR [Concomitant]
  7. PROMETHAZINE DM [Concomitant]

REACTIONS (7)
  - ARTHRALGIA [None]
  - ASTHENIA [None]
  - BONE PAIN [None]
  - DEHYDRATION [None]
  - GAIT DISTURBANCE [None]
  - NAUSEA [None]
  - PNEUMONIA [None]
